FAERS Safety Report 7841155 (Version 2)
Quarter: 2014Q2

REPORT INFORMATION
  Report Type: Spontaneous
  Country: FR (occurrence: FR)
  Receive Date: 20110304
  Receipt Date: 20140512
  Transmission Date: 20141212
  Serious: Yes (Other)
  Sender: FDA-Public Use
  Company Number: FR-JNJFOC-20110208441

PATIENT
  Age: 44 Year
  Sex: Female

DRUGS (7)
  1. EPITOMAX [Suspect]
     Indication: MIGRAINE PROPHYLAXIS
     Route: 048
     Dates: start: 200803, end: 200911
  2. EPITOMAX [Suspect]
     Indication: MIGRAINE PROPHYLAXIS
     Dosage: PROGRESSIVE DOSES
     Route: 048
     Dates: start: 200802, end: 200803
  3. PROPRANOLOL [Concomitant]
     Route: 065
  4. MANGANESE [Concomitant]
     Route: 065
  5. LITHIUM [Concomitant]
     Route: 065
  6. MELODIA [Concomitant]
     Route: 065
  7. COBALT [Concomitant]
     Route: 065

REACTIONS (2)
  - Granuloma annulare [Recovered/Resolved]
  - Social avoidant behaviour [Unknown]
